FAERS Safety Report 17111328 (Version 1)
Quarter: 2019Q4

REPORT INFORMATION
  Report Type: Spontaneous
  Country: GB (occurrence: GB)
  Receive Date: 20191204
  Receipt Date: 20191204
  Transmission Date: 20200122
  Serious: Yes (Other)
  Sender: FDA-Public Use
  Company Number: GB-BAUSCH-BL-2019-063747

PATIENT
  Sex: Male

DRUGS (2)
  1. MONOPOST [Suspect]
     Active Substance: LATANOPROST
     Indication: MEDICATION ERROR
     Route: 065
  2. BRIMONIDINE [Suspect]
     Active Substance: BRIMONIDINE TARTRATE
     Indication: MEDICATION ERROR
     Route: 065

REACTIONS (3)
  - Wrong product administered [Unknown]
  - Glaucoma [Unknown]
  - Product dispensing error [Unknown]
